FAERS Safety Report 8988382 (Version 1)
Quarter: 2012Q4

REPORT INFORMATION
  Report Type: Spontaneous
  Country: US (occurrence: None)
  Receive Date: 20121220
  Receipt Date: 20121220
  Transmission Date: 20130627
  Serious: No
  Sender: FDA-Public Use
  Company Number: None

PATIENT
  Age: 45 Year
  Sex: Female

DRUGS (2)
  1. PEGASYS [Suspect]
     Indication: HEPATITIS C
     Route: 058
     Dates: start: 20120823
  2. RIBAPAK [Suspect]
     Indication: HEPATITIS C
     Route: 048
     Dates: start: 20120823

REACTIONS (7)
  - Nausea [None]
  - Blood iron decreased [None]
  - Feeling hot [None]
  - Decreased appetite [None]
  - Fatigue [None]
  - Insomnia [None]
  - Amnesia [None]
